FAERS Safety Report 6838963-7 (Version None)
Quarter: 2010Q3

REPORT INFORMATION
  Report Type: 
  Country: None (occurrence: None)
  Receive Date: 20100713
  Receipt Date: 20070827
  Transmission Date: 20110219
  Serious: No
  Sender: FDA-Public Use
  Company Number: US-PFIZER INC-2007040019

PATIENT
  Sex: Male
  Weight: 143.3 kg

DRUGS (2)
  1. CHANTIX [Suspect]
     Indication: SMOKING CESSATION THERAPY
     Dosage: FREQUENCY: 2 IN 1 D
     Route: 048
     Dates: start: 20070507
  2. LOTREL [Concomitant]
     Indication: HYPERTENSION

REACTIONS (4)
  - BACK PAIN [None]
  - FLANK PAIN [None]
  - INSOMNIA [None]
  - RENAL PAIN [None]
